FAERS Safety Report 9729317 (Version 4)
Quarter: 2014Q1

REPORT INFORMATION
  Report Type: Spontaneous
  Country: BR (occurrence: BR)
  Receive Date: 20131204
  Receipt Date: 20140108
  Transmission Date: 20141002
  Serious: Yes (Hospitalization, Other)
  Sender: FDA-Public Use
  Company Number: BR-PFIZER INC-2013189868

PATIENT
  Sex: Male

DRUGS (3)
  1. SUTENT [Suspect]
     Indication: RENAL CELL CARCINOMA
     Dosage: 50 MG (ONE CAPSULE), 1X/DAY
     Route: 048
     Dates: start: 20130602, end: 201312
  2. PLASIL [Concomitant]
     Dosage: UNK
  3. LUFTAL [Concomitant]
     Dosage: UNK

REACTIONS (24)
  - Red blood cell count decreased [Recovering/Resolving]
  - Ascites [Unknown]
  - Peritoneal disorder [Unknown]
  - Asthenia [Not Recovered/Not Resolved]
  - Disease progression [Unknown]
  - Renal cell carcinoma [Unknown]
  - Nausea [Not Recovered/Not Resolved]
  - Vomiting [Not Recovered/Not Resolved]
  - Flatulence [Unknown]
  - Fatigue [Unknown]
  - Yellow skin [Recovering/Resolving]
  - Gait disturbance [Unknown]
  - Hepatomegaly [Not Recovered/Not Resolved]
  - Oedema peripheral [Unknown]
  - Spinal pain [Not Recovered/Not Resolved]
  - Pelvic pain [Not Recovered/Not Resolved]
  - Parosmia [Unknown]
  - Feeding disorder [Unknown]
  - Decreased appetite [Unknown]
  - Activities of daily living impaired [Unknown]
  - Malaise [Unknown]
  - Abdominal pain [Not Recovered/Not Resolved]
  - Dysgeusia [Unknown]
  - Liver disorder [Not Recovered/Not Resolved]
